FAERS Safety Report 6822301-X (Version None)
Quarter: 2010Q3

REPORT INFORMATION
  Report Type: 
  Country: None (occurrence: None)
  Receive Date: 20100708
  Receipt Date: 20100607
  Transmission Date: 20110219
  Serious: No
  Sender: FDA-Public Use
  Company Number: US-BAYER-201016576BCC

PATIENT
  Age: 82 Year
  Sex: Female
  Weight: 57 kg

DRUGS (3)
  1. ALEVE [Suspect]
     Indication: ARTHRALGIA
     Dosage: TOTAL DAILY DOSE: 880 MG  UNIT DOSE: 220 MG
     Route: 048
  2. PROPRANOLOL [Concomitant]
     Route: 065
  3. SIMVASTATIN [Concomitant]
     Route: 065

REACTIONS (3)
  - HYPOAESTHESIA [None]
  - NECK PAIN [None]
  - OEDEMA PERIPHERAL [None]
